FAERS Safety Report 17827283 (Version 2)
Quarter: 2020Q2

REPORT INFORMATION
  Report Type: Spontaneous
  Country: RU (occurrence: RU)
  Receive Date: 20200527
  Receipt Date: 20200626
  Transmission Date: 20200714
  Serious: Yes (Hospitalization, Other)
  Sender: FDA-Public Use
  Company Number: RU-SA-2020SA135428

PATIENT

DRUGS (31)
  1. PLAQUENIL [Suspect]
     Active Substance: HYDROXYCHLOROQUINE SULFATE
     Dosage: 1 DF BID, 1 TAB-NOON, 1 TAB-EVENING
     Route: 048
     Dates: start: 20190820, end: 20191023
  2. CEFEPIME HYDROCHLORIDE. [Suspect]
     Active Substance: CEFEPIME HYDROCHLORIDE
     Dosage: UNK
     Route: 042
     Dates: start: 20190823, end: 20190901
  3. MAGNESIUM SULFATE. [Suspect]
     Active Substance: MAGNESIUM SULFATE
     Dosage: UNK
     Route: 041
  4. METHYLDOPA. [Suspect]
     Active Substance: METHYLDOPA
     Dosage: 0.5 DF, TID
     Route: 048
     Dates: start: 20190830, end: 20190903
  5. AZATHIOPRINE. [Suspect]
     Active Substance: AZATHIOPRINE
     Dosage: 50 MG, QD, IN MORNING
     Dates: start: 20191015, end: 20191021
  6. CLEXANE [Suspect]
     Active Substance: ENOXAPARIN SODIUM
     Indication: EMBOLISM
     Dosage: 0.4 UNK, QD
     Route: 058
     Dates: start: 20190820, end: 20190915
  7. NIFEDIPINE. [Suspect]
     Active Substance: NIFEDIPINE
     Dosage: 30 MG, QD
     Dates: start: 20190906, end: 20190911
  8. NIFEDIPINE. [Suspect]
     Active Substance: NIFEDIPINE
     Dosage: 30 MG, QD
     Dates: start: 20190911, end: 20190915
  9. NIFEDIPINE. [Suspect]
     Active Substance: NIFEDIPINE
     Dosage: 60 MG-MORNING,30 MG-EVENING BID
     Dates: start: 20190917, end: 20191023
  10. DIPYRIDAMOLE. [Suspect]
     Active Substance: DIPYRIDAMOLE
     Dosage: 75 MG, BID
     Dates: start: 20191011, end: 20191123
  11. CEFTAROLINE FOSAMIL [Suspect]
     Active Substance: CEFTAROLINE FOSAMIL
     Dosage: 600MG IN NACL SOLUTION 0.9% -100 IV DRIP- 1 HOUR
     Route: 041
  12. SUPRASTIN [Suspect]
     Active Substance: CHLOROPYRAMINE HYDROCHLORIDE
     Dosage: 1 DF, HS
     Route: 048
     Dates: start: 20190903, end: 20190905
  13. METHYLDOPA. [Suspect]
     Active Substance: METHYLDOPA
     Dosage: 1.5 DF, QID
     Dates: start: 20191009, end: 20191023
  14. PROGESTERONE. [Suspect]
     Active Substance: PROGESTERONE
     Indication: ABORTION THREATENED
     Dosage: 400MG QD FROM 14 WEEKS
  15. CLEXANE [Suspect]
     Active Substance: ENOXAPARIN SODIUM
     Dosage: 0.4 UNK, BID
     Route: 058
     Dates: start: 20190916, end: 20190926
  16. METHYLDOPA. [Suspect]
     Active Substance: METHYLDOPA
     Dosage: 0.5 DF, QD
     Route: 048
     Dates: start: 20190827, end: 20190830
  17. FOSFOMYCIN [Suspect]
     Active Substance: FOSFOMYCIN
     Dosage: 3 G, HS
     Dates: start: 20190919, end: 20191023
  18. FERRIC HYDROXIDE POLYMALTOSE COMPLEX [Suspect]
     Active Substance: IRON POLYMALTOSE
     Dosage: 1 DF, TID
     Route: 048
     Dates: start: 20190820, end: 20191023
  19. METHYLPREDNISOLONE. [Suspect]
     Active Substance: METHYLPREDNISOLONE
     Indication: SYSTEMIC LUPUS ERYTHEMATOSUS
     Dosage: 8 DF, QD
     Route: 048
  20. OMEPRAZOLE. [Suspect]
     Active Substance: OMEPRAZOLE
     Dosage: 1 DF, BID
     Route: 048
     Dates: start: 20190820, end: 20191023
  21. FOLIC ACID. [Suspect]
     Active Substance: FOLIC ACID
     Dosage: 1 DF, TID
     Route: 048
     Dates: start: 20190820, end: 20191023
  22. METHYLPREDNISOLONE. [Suspect]
     Active Substance: METHYLPREDNISOLONE
     Dosage: 500+ NACL SOL. 0.9%,100 IV DRIP-30 MIN, TWICE IN WEEK
     Route: 041
  23. AZATHIOPRINE. [Suspect]
     Active Substance: AZATHIOPRINE
     Dosage: 50 MG, BID
     Dates: start: 20191021, end: 20191023
  24. PREDNISOLONE. [Suspect]
     Active Substance: PREDNISOLONE
     Dosage: 4 TAB-MORNING,3 TAB-NOON,1TAB-EVENING
     Route: 048
     Dates: start: 20190820, end: 20191023
  25. METHYLDOPA. [Suspect]
     Active Substance: METHYLDOPA
     Dosage: 1.5 DF, QID
     Dates: start: 20191011, end: 20191023
  26. METHYLPREDNISOLONE. [Suspect]
     Active Substance: METHYLPREDNISOLONE
     Dosage: 250 NACL SOL 0.9%, 100 1 IV DRIP-30 MIN, TWICE A WEEK
     Route: 041
  27. CLEXANE [Suspect]
     Active Substance: ENOXAPARIN SODIUM
     Dosage: 0.4 UNK, BID
     Route: 058
     Dates: start: 20191011, end: 20191023
  28. NIFEDIPINE. [Suspect]
     Active Substance: NIFEDIPINE
     Dosage: 30 MG, BID
     Dates: start: 20190819, end: 20190917
  29. LEVOTHYROXINE SODIUM. [Suspect]
     Active Substance: LEVOTHYROXINE SODIUM
     Dosage: UNK
  30. FOSFOMYCIN [Suspect]
     Active Substance: FOSFOMYCIN
     Dosage: 3G QW ON FRIDAY
     Dates: start: 20191009, end: 20191023
  31. SUPRASTIN [Suspect]
     Active Substance: CHLOROPYRAMINE HYDROCHLORIDE
     Dosage: 1 DF, BID
     Route: 048
     Dates: start: 20190905, end: 20191023

REACTIONS (5)
  - Pre-eclampsia [Unknown]
  - Placental disorder [Unknown]
  - Placental insufficiency [Unknown]
  - Iron deficiency anaemia [Unknown]
  - Exposure during pregnancy [Unknown]
